FAERS Safety Report 6519201-1 (Version None)
Quarter: 2009Q4

REPORT INFORMATION
  Report Type: 
  Country: None (occurrence: None)
  Receive Date: 20091228
  Receipt Date: 20090924
  Transmission Date: 20100525
  Serious: Yes (Other)
  Sender: FDA-Public Use
  Company Number: US-SANOFI-AVENTIS-A03200904463

PATIENT
  Age: 78 Year
  Sex: Male

DRUGS (2)
  1. CLOPIDOGREL BISULFATE [Suspect]
     Dosage: UNIT DOSE: 75 MG
     Route: 048
     Dates: start: 20060101
  2. CRESTOR [Concomitant]
     Dates: start: 20090101

REACTIONS (2)
  - MEMORY IMPAIRMENT [None]
  - PERIPHERAL ARTERIAL OCCLUSIVE DISEASE [None]
